FAERS Safety Report 10818550 (Version 2)
Quarter: 2015Q2

REPORT INFORMATION
  Report Type: Spontaneous
  Country: US (occurrence: US)
  Receive Date: 20150218
  Receipt Date: 20150624
  Transmission Date: 20150821
  Serious: Yes (Other)
  Sender: FDA-Public Use
  Company Number: PHEH2015US002845

PATIENT
  Age: 6 Year
  Sex: Male
  Weight: 60 kg

DRUGS (1)
  1. FOCALIN XR [Suspect]
     Active Substance: DEXMETHYLPHENIDATE HYDROCHLORIDE
     Indication: ATTENTION DEFICIT/HYPERACTIVITY DISORDER
     Dosage: 5 MG, QD
     Route: 048
     Dates: start: 20150207, end: 20150208

REACTIONS (13)
  - Head injury [Recovered/Resolved]
  - Initial insomnia [Unknown]
  - Unresponsive to stimuli [Recovered/Resolved]
  - Loss of consciousness [Unknown]
  - Fall [Recovered/Resolved]
  - Craniocerebral injury [Unknown]
  - Somnolence [Recovered/Resolved]
  - Fatigue [Unknown]
  - Catatonia [Unknown]
  - Tension [Recovered/Resolved]
  - Abnormal behaviour [Recovered/Resolved]
  - Seizure [Unknown]
  - Feeling abnormal [Unknown]

NARRATIVE: CASE EVENT DATE: 20150207
